FAERS Safety Report 5735046-4 (Version None)
Quarter: 2008Q2

REPORT INFORMATION
  Report Type: 
  Country: None (occurrence: None)
  Receive Date: 20080512
  Receipt Date: 20080430
  Transmission Date: 20081010
  Serious: Yes (Hospitalization)
  Sender: FDA-Public Use
  Company Number: ES-ROCHE-561866

PATIENT
  Age: 7 Year
  Sex: Male

DRUGS (1)
  1. ISOTRETINOIN [Suspect]
     Indication: NEUROBLASTOMA
     Route: 048
     Dates: start: 20070521, end: 20070604

REACTIONS (5)
  - ABDOMINAL PAIN [None]
  - HYPERCALCAEMIA [None]
  - HYPERTRIGLYCERIDAEMIA [None]
  - HYPERURICAEMIA [None]
  - MYALGIA [None]
